FAERS Safety Report 15335665 (Version 1)
Quarter: 2018Q3

REPORT INFORMATION
  Report Type: Spontaneous
  Country: None (occurrence: PK)
  Receive Date: 20180830
  Receipt Date: 20180830
  Transmission Date: 20181010
  Serious: Yes (Hospitalization)
  Sender: FDA-Public Use
  Company Number: PK-STI PHARMA LLC-2054486

PATIENT
  Age: 27 Year
  Sex: Male

DRUGS (7)
  1. CYCLOSERINE. [Concomitant]
     Active Substance: CYCLOSERINE
     Route: 048
     Dates: start: 20170426
  2. ETHIONAMIDE [Concomitant]
     Active Substance: ETHIONAMIDE
     Route: 048
     Dates: start: 20170426
  3. ETHAMBUTOL HYDROCHLORIDE. [Suspect]
     Active Substance: ETHAMBUTOL HYDROCHLORIDE
     Route: 048
     Dates: start: 20170426
  4. LEVOFLOXACIN. [Concomitant]
     Active Substance: LEVOFLOXACIN
     Route: 048
     Dates: start: 20170426
  5. LINEZOLID. [Concomitant]
     Active Substance: LINEZOLID
     Route: 048
     Dates: start: 20170426
  6. PYRAZINAMIDE. [Concomitant]
     Active Substance: PYRAZINAMIDE
     Route: 048
     Dates: start: 20170426
  7. DELAMANID [Concomitant]
     Active Substance: DELAMANID
     Route: 048
     Dates: start: 20170426

REACTIONS (3)
  - Forearm fracture [Unknown]
  - Road traffic accident [Unknown]
  - Joint dislocation [Unknown]

NARRATIVE: CASE EVENT DATE: 20180728
